FAERS Safety Report 13135824 (Version 2)
Quarter: 2017Q1

REPORT INFORMATION
  Report Type: Report from Study
  Country: US (occurrence: US)
  Receive Date: 20170120
  Receipt Date: 20170125
  Transmission Date: 20170428
  Serious: Yes (Death, Other)
  Sender: FDA-Public Use
  Company Number: US-ACTELION-A-US2017-148516

PATIENT
  Age: 3 Year
  Sex: Female

DRUGS (9)
  1. TRACLEER [Suspect]
     Active Substance: BOSENTAN
     Indication: PULMONARY HYPERTENSION
     Dosage: 125 MG, BID
     Route: 048
     Dates: start: 20131025, end: 20170108
  2. LASIX [Concomitant]
     Active Substance: FUROSEMIDE
     Dosage: 10 MG/ML, Q12HRS
  3. SILDENAFIL. [Concomitant]
     Active Substance: SILDENAFIL
     Indication: PULMONARY ARTERIAL HYPERTENSION
     Dosage: 2.5 MG/ML, Q8H
     Route: 048
  4. LANOXIN [Concomitant]
     Active Substance: DIGOXIN
     Dosage: 50 UNK, UNK
     Route: 048
  5. FLONASE [Concomitant]
     Active Substance: FLUTICASONE PROPIONATE
     Dosage: 15 MCG/ACT, QD
     Route: 045
  6. FERROUS SULFATE. [Concomitant]
     Active Substance: FERROUS SULFATE
     Dosage: 15 MG, UNK
     Route: 048
  7. SPIRONOLACTONE. [Concomitant]
     Active Substance: SPIRONOLACTONE
     Dosage: 10 MG/ML, BID
     Route: 048
  8. REMODULIN [Concomitant]
     Active Substance: TREPROSTINIL
     Dosage: 1 MG/ML, UNK
     Route: 058
  9. ZYRTEC [Concomitant]
     Active Substance: CETIRIZINE HYDROCHLORIDE
     Dosage: 1 MG/ML, 5 ML QD
     Route: 048

REACTIONS (3)
  - Pulmonary hypertension [Fatal]
  - Seizure [Unknown]
  - Cardio-respiratory arrest [Fatal]

NARRATIVE: CASE EVENT DATE: 20170108
